FAERS Safety Report 6291958-7 (Version None)
Quarter: 2009Q3

REPORT INFORMATION
  Report Type: 
  Country: None (occurrence: None)
  Receive Date: 20090729
  Receipt Date: 20090722
  Transmission Date: 20100115
  Serious: Yes (Other)
  Sender: FDA-Public Use
  Company Number: 2009-201152-NL

PATIENT
  Age: 75 Year
  Sex: Female
  Weight: 61.2 kg

DRUGS (4)
  1. REMERON [Suspect]
     Indication: DEPRESSION
     Dates: start: 20040624, end: 20090702
  2. CARDIZEM [Concomitant]
  3. LEXAPRO [Concomitant]
  4. TARKA - SLOW RELEASE [Concomitant]

REACTIONS (1)
  - CONVULSION [None]
